FAERS Safety Report 19925337 (Version 1)
Quarter: 2021Q4

REPORT INFORMATION
  Report Type: Spontaneous
  Country: US (occurrence: US)
  Receive Date: 20211006
  Receipt Date: 20211006
  Transmission Date: 20220303
  Serious: No
  Sender: FDA-Public Use
  Company Number: US-TAKEDA-2021TUS061498

PATIENT
  Age: 50 Year
  Sex: Female

DRUGS (1)
  1. MOTEGRITY [Suspect]
     Active Substance: PRUCALOPRIDE SUCCINATE
     Indication: Constipation
     Dosage: 4 MILLIGRAM, QD
     Route: 048
     Dates: start: 202006

REACTIONS (2)
  - Off label use [Unknown]
  - No adverse event [Unknown]
